FAERS Safety Report 9266871 (Version 2)
Quarter: 2013Q2

REPORT INFORMATION
  Report Type: Report from Study
  Country: PL (occurrence: PL)
  Receive Date: 20130502
  Receipt Date: 20130529
  Transmission Date: 20140414
  Serious: Yes (Death, Life-Threatening, Hospitalization, Other)
  Sender: FDA-Public Use
  Company Number: PL-ROCHE-1207382

PATIENT
  Age: 56 Year
  Sex: Male
  Weight: 74 kg

DRUGS (4)
  1. RIBAVIRIN [Suspect]
     Indication: HEPATITIS C
     Dosage: EVERY DAY
     Route: 048
     Dates: start: 20121211, end: 20121227
  2. PEG-INTERFERON ALFA 2A [Suspect]
     Indication: HEPATITIS C
     Route: 058
     Dates: start: 20121211, end: 20121225
  3. VX-222 [Suspect]
     Indication: HEPATITIS C
     Route: 048
     Dates: start: 20121211, end: 20121227
  4. TELAPREVIR [Suspect]
     Indication: HEPATITIS C
     Route: 048
     Dates: start: 20121211, end: 20121227

REACTIONS (2)
  - Escherichia sepsis [Fatal]
  - Septic shock [Fatal]
